FAERS Safety Report 25055965 (Version 1)
Quarter: 2025Q1

REPORT INFORMATION
  Report Type: Spontaneous
  Country: US (occurrence: US)
  Receive Date: 20250309
  Receipt Date: 20250309
  Transmission Date: 20250409
  Serious: No
  Sender: ELI LILLY AND COMPANY
  Company Number: US-ELI_LILLY_AND_COMPANY-US202503004007

PATIENT
  Age: 57 Year
  Sex: Female

DRUGS (8)
  1. MOUNJARO [Suspect]
     Active Substance: TIRZEPATIDE
     Indication: Type 2 diabetes mellitus
     Route: 058
  2. MOUNJARO [Suspect]
     Active Substance: TIRZEPATIDE
     Indication: Type 2 diabetes mellitus
     Route: 058
  3. MOUNJARO [Suspect]
     Active Substance: TIRZEPATIDE
     Indication: Type 2 diabetes mellitus
     Route: 058
  4. MOUNJARO [Suspect]
     Active Substance: TIRZEPATIDE
     Indication: Type 2 diabetes mellitus
     Route: 058
  5. MOUNJARO [Suspect]
     Active Substance: TIRZEPATIDE
     Indication: Metabolic dysfunction-associated liver disease
  6. MOUNJARO [Suspect]
     Active Substance: TIRZEPATIDE
     Indication: Metabolic dysfunction-associated liver disease
  7. MOUNJARO [Suspect]
     Active Substance: TIRZEPATIDE
     Indication: Metabolic dysfunction-associated liver disease
  8. MOUNJARO [Suspect]
     Active Substance: TIRZEPATIDE
     Indication: Metabolic dysfunction-associated liver disease

REACTIONS (2)
  - Product dose omission issue [Unknown]
  - Injection site erythema [Unknown]
